FAERS Safety Report 9352041 (Version 4)
Quarter: 2013Q3

REPORT INFORMATION
  Report Type: Spontaneous
  Country: IT (occurrence: IT)
  Receive Date: 20130617
  Receipt Date: 20130708
  Transmission Date: 20140515
  Serious: Yes (Other)
  Sender: FDA-Public Use
  Company Number: PHHY2013IT061732

PATIENT
  Age: 67 Year
  Sex: Female

DRUGS (3)
  1. ZOMETA [Suspect]
     Indication: METASTASES TO BONE
     Dosage: 4 MG, MONTHLY
     Route: 042
     Dates: start: 20080528, end: 20090722
  2. SUTENT [Suspect]
     Indication: RENAL CANCER
     Dosage: 50 MG, QD
     Route: 048
     Dates: start: 20090625, end: 20091202
  3. SUTENT [Suspect]
     Dosage: 37.5 MG, QD
     Route: 048
     Dates: start: 20091216, end: 20130223

REACTIONS (8)
  - Rectal haemorrhage [Recovering/Resolving]
  - Mucosal inflammation [Recovering/Resolving]
  - Hypothyroidism [Recovering/Resolving]
  - Osteonecrosis of jaw [Recovering/Resolving]
  - Hypertension [Recovering/Resolving]
  - Fatigue [Recovering/Resolving]
  - Nausea [Recovering/Resolving]
  - Vomiting [Recovering/Resolving]
